FAERS Safety Report 6254644-5 (Version None)
Quarter: 2009Q3

REPORT INFORMATION
  Report Type: 
  Country: None (occurrence: None)
  Receive Date: 20090702
  Receipt Date: 20090620
  Transmission Date: 20100115
  Serious: Yes (Other)
  Sender: FDA-Public Use
  Company Number: B0578470A

PATIENT
  Age: 12 Year
  Sex: Male

DRUGS (1)
  1. ZINACEF [Suspect]
     Indication: HERNIA REPAIR
     Route: 065

REACTIONS (4)
  - COMA [None]
  - LOSS OF CONSCIOUSNESS [None]
  - PYREXIA [None]
  - TRANSMISSION OF AN INFECTIOUS AGENT VIA A MEDICINAL PRODUCT [None]
